FAERS Safety Report 7312103-2 (Version None)
Quarter: 2011Q1

REPORT INFORMATION
  Report Type: 
  Country: None (occurrence: None)
  Receive Date: 20110224
  Receipt Date: 20110211
  Transmission Date: 20110831
  Serious: Yes (Hospitalization, Other)
  Sender: FDA-Public Use
  Company Number: US-ELI_LILLY_AND_COMPANY-US201101003893

PATIENT
  Sex: Female

DRUGS (13)
  1. FORTEO [Suspect]
     Indication: OSTEOPOROSIS
     Dosage: 20 UG, DAILY (1/D)
     Dates: start: 20110113, end: 20110115
  2. CELLCEPT [Concomitant]
  3. PEPCID [Concomitant]
  4. URSODIOL [Concomitant]
  5. MULTI-VITAMIN [Concomitant]
  6. ULTRAM [Concomitant]
  7. CELEXA [Concomitant]
  8. ZOFRAN [Concomitant]
  9. ASPIRIN [Concomitant]
  10. ERGOCALCIFEROL [Concomitant]
  11. PROGRAF [Concomitant]
  12. LEVOTHYROXINE SODIUM [Concomitant]
  13. PREDNISONE [Concomitant]

REACTIONS (15)
  - PERICARDIAL EFFUSION [None]
  - BACK PAIN [None]
  - DIZZINESS [None]
  - DIARRHOEA [None]
  - PULMONARY OEDEMA [None]
  - ADVERSE REACTION [None]
  - ARTHRALGIA [None]
  - NAUSEA [None]
  - HOSPITALISATION [None]
  - LIVER DISORDER [None]
  - INSOMNIA [None]
  - WEIGHT DECREASED [None]
  - HEART RATE INCREASED [None]
  - CONSTIPATION [None]
  - PAIN [None]
